FAERS Safety Report 16384658 (Version 2)
Quarter: 2019Q3

REPORT INFORMATION
  Report Type: Report from Study
  Country: US (occurrence: US)
  Receive Date: 20190603
  Receipt Date: 20190916
  Transmission Date: 20191004
  Serious: Yes (Hospitalization)
  Sender: FDA-Public Use
  Company Number: US-JNJFOC-20190521741

PATIENT
  Age: 55 Year
  Sex: Male

DRUGS (1)
  1. IMBRUVICA [Suspect]
     Active Substance: IBRUTINIB
     Indication: CHRONIC LYMPHOCYTIC LEUKAEMIA
     Route: 048
     Dates: start: 20190415

REACTIONS (9)
  - Viral infection [Unknown]
  - Constipation [Unknown]
  - Platelet count decreased [Unknown]
  - Epstein-Barr virus infection [Unknown]
  - Contusion [Unknown]
  - Adverse drug reaction [Not Recovered/Not Resolved]
  - Red blood cell count decreased [Unknown]
  - Pneumonia [Unknown]
  - Bone pain [Unknown]

NARRATIVE: CASE EVENT DATE: 20190527
